FAERS Safety Report 21288729 (Version 1)
Quarter: 2022Q3

REPORT INFORMATION
  Report Type: Spontaneous
  Country: US (occurrence: US)
  Receive Date: 20220902
  Receipt Date: 20220902
  Transmission Date: 20221026
  Serious: No
  Sender: FDA-Public Use
  Company Number: US-ABBVIE-22K-163-4417455-00

PATIENT
  Age: 46 Year
  Sex: Female

DRUGS (2)
  1. RINVOQ [Suspect]
     Active Substance: UPADACITINIB
     Indication: Rheumatoid arthritis
     Route: 048
     Dates: start: 20220518
  2. RINVOQ [Suspect]
     Active Substance: UPADACITINIB
     Indication: Inflammatory bowel disease

REACTIONS (1)
  - Product residue present [Unknown]

NARRATIVE: CASE EVENT DATE: 20220518
